FAERS Safety Report 14634924 (Version 1)
Quarter: 2018Q1

REPORT INFORMATION
  Report Type: Report from Study
  Country: US (occurrence: US)
  Receive Date: 20180314
  Receipt Date: 20180314
  Transmission Date: 20180509
  Serious: Yes (Other)
  Sender: FDA-Public Use
  Company Number: US-ROCHE-2085721

PATIENT
  Age: 4 Year
  Sex: Male
  Weight: 17.3 kg

DRUGS (6)
  1. NUTROPIN AQ [Suspect]
     Active Substance: SOMATROPIN
     Indication: GROWTH HORMONE DEFICIENCY
     Route: 058
  2. NUTROPIN AQ [Suspect]
     Active Substance: SOMATROPIN
     Route: 058
     Dates: start: 201302
  3. NUTROPIN AQ [Suspect]
     Active Substance: SOMATROPIN
     Route: 058
  4. NUTROPIN AQ [Suspect]
     Active Substance: SOMATROPIN
     Route: 058
  5. NUTROPIN AQ [Suspect]
     Active Substance: SOMATROPIN
     Route: 058
  6. NUTROPIN AQ [Suspect]
     Active Substance: SOMATROPIN
     Route: 058

REACTIONS (7)
  - Insulin-like growth factor decreased [Unknown]
  - Platelet count increased [Unknown]
  - Incorrect dose administered [Unknown]
  - Lymphocyte count increased [Unknown]
  - Deafness [Unknown]
  - Clavicle fracture [Unknown]
  - Growth retardation [Unknown]

NARRATIVE: CASE EVENT DATE: 20130219
